FAERS Safety Report 21494740 (Version 4)
Quarter: 2023Q4

REPORT INFORMATION
  Report Type: Report from Study
  Country: US (occurrence: US)
  Receive Date: 20221021
  Receipt Date: 20231028
  Transmission Date: 20240109
  Serious: Yes (Other)
  Sender: FDA-Public Use
  Company Number: US-ABBVIE-4168153

PATIENT
  Sex: Male

DRUGS (1)
  1. HUMIRA [Suspect]
     Active Substance: ADALIMUMAB
     Indication: Rheumatoid arthritis
     Dosage: FORM STRENGTH: 40 MILLIGRAM,  ?CITRATE FREE
     Route: 058
     Dates: start: 20220519

REACTIONS (4)
  - Osteoarthritis [Unknown]
  - Procedural pain [Recovering/Resolving]
  - Knee arthroplasty [Unknown]
  - Complication associated with device [Unknown]

NARRATIVE: CASE EVENT DATE: 20220101
